FAERS Safety Report 9121975 (Version 1)
Quarter: 2013Q1

REPORT INFORMATION
  Report Type: Spontaneous
  Country: US (occurrence: US)
  Receive Date: 20130114
  Receipt Date: 20130114
  Transmission Date: 20140127
  Serious: Yes (Death, Other)
  Sender: FDA-Public Use
  Company Number: PHEH2013US001042

PATIENT
  Age: 25 Year
  Sex: Male

DRUGS (1)
  1. TOBI [Suspect]
     Indication: CYSTIC FIBROSIS
     Dosage: 300 MG, BID/ ON 7 DAYS AND THEN OFF
     Dates: start: 20121020

REACTIONS (2)
  - Death [Fatal]
  - Pneumonia [Unknown]
